FAERS Safety Report 6237762-7 (Version None)
Quarter: 2009Q2

REPORT INFORMATION
  Report Type: 
  Country: None (occurrence: None)
  Receive Date: 20090618
  Receipt Date: 20090610
  Transmission Date: 20091009
  Serious: Yes (Other)
  Sender: FDA-Public Use
  Company Number: ALL1-2009-01607

PATIENT
  Age: 28 Year
  Sex: Male

DRUGS (2)
  1. VYVANSE [Suspect]
     Indication: DRUG USE FOR UNKNOWN INDICATION
     Dosage: 20 MG, 1X/DAY; QD, ORAL; 30 MG, 1X/DAY; QD, ORAL
     Route: 048
  2. ADDERALL(AMFETAMINE ASPARTATE, AFETAMINE SULFATE, DEXAMFETAMINE SACCHA [Suspect]
     Indication: DRUG USE FOR UNKNOWN INDICATION
     Dosage: ORAL
     Route: 048

REACTIONS (3)
  - DRUG ABUSE [None]
  - INTENTIONAL DRUG MISUSE [None]
  - MULTIPLE DRUG OVERDOSE INTENTIONAL [None]
